FAERS Safety Report 23422282 (Version 1)
Quarter: 2024Q1

REPORT INFORMATION
  Report Type: Spontaneous
  Country: US (occurrence: None)
  Receive Date: 20240118
  Receipt Date: 20240118
  Transmission Date: 20240409
  Serious: Yes (Death)
  Sender: FDA-Public Use
  Company Number: None

PATIENT
  Age: 75 Year
  Sex: Female

DRUGS (1)
  1. VELTASSA [Suspect]
     Active Substance: PATIROMER
     Indication: Hyperkalaemia
     Dosage: OTHER QUANTITY : 8.4G;?FREQUENCY : DAILY;?
     Route: 048
     Dates: start: 20220812, end: 20240118

REACTIONS (2)
  - Respiratory syncytial virus infection [None]
  - Renal disorder [None]

NARRATIVE: CASE EVENT DATE: 20240118
